FAERS Safety Report 16858135 (Version 1)
Quarter: 2019Q3

REPORT INFORMATION
  Report Type: Spontaneous
  Country: US (occurrence: US)
  Receive Date: 20190926
  Receipt Date: 20190926
  Transmission Date: 20191005
  Serious: No
  Sender: FDA-Public Use
  Company Number: US-TEVA-2019-US-1112638

PATIENT
  Sex: Female

DRUGS (1)
  1. PIMECROLIMUS 1 % [Suspect]
     Active Substance: PIMECROLIMUS
     Indication: RASH
     Dates: start: 20190916, end: 20190917

REACTIONS (4)
  - Application site pain [Unknown]
  - Application site pruritus [Unknown]
  - Application site irritation [Not Recovered/Not Resolved]
  - Application site erythema [Not Recovered/Not Resolved]
